FAERS Safety Report 10570755 (Version 2)
Quarter: 2015Q3

REPORT INFORMATION
  Report Type: Spontaneous
  Country: DK (occurrence: CN)
  Receive Date: 20141107
  Receipt Date: 20150716
  Transmission Date: 20151125
  Serious: Yes (Disabling)
  Sender: FDA-Public Use
  Company Number: CN-FRI-1000072126

PATIENT
  Age: 85 Year
  Sex: Male

DRUGS (4)
  1. ESCITALOPRAM [Suspect]
     Active Substance: ESCITALOPRAM OXALATE
     Dosage: 10 MG
     Route: 048
     Dates: start: 20140523
  2. ESCITALOPRAM [Suspect]
     Active Substance: ESCITALOPRAM OXALATE
     Indication: DEPRESSION
     Dosage: 5 MG
     Route: 048
     Dates: start: 20140520, end: 20140522
  3. ESCITALOPRAM [Suspect]
     Active Substance: ESCITALOPRAM OXALATE
     Dosage: 10 MG
     Route: 048
     Dates: end: 20140705
  4. ESCITALOPRAM [Suspect]
     Active Substance: ESCITALOPRAM OXALATE
     Dosage: 40 MG
     Route: 048

REACTIONS (11)
  - Blindness unilateral [Unknown]
  - Asthenia [Unknown]
  - Optic atrophy [Unknown]
  - Incorrect dose administered [Unknown]
  - Visual acuity reduced [Unknown]
  - Nausea [Unknown]
  - Vision blurred [Unknown]
  - Dizziness [Unknown]
  - Somnolence [Unknown]
  - Vitreous opacities [Unknown]
  - Discomfort [Unknown]

NARRATIVE: CASE EVENT DATE: 20140604
